FAERS Safety Report 14761325 (Version 1)
Quarter: 2018Q2

REPORT INFORMATION
  Report Type: Report from Study
  Country: US (occurrence: US)
  Receive Date: 20180415
  Receipt Date: 20180415
  Transmission Date: 20180711
  Serious: Yes (Hospitalization)
  Sender: FDA-Public Use
  Company Number: PHEH2018US013369

PATIENT
  Sex: Female
  Weight: 116.1 kg

DRUGS (1)
  1. COSENTYX [Suspect]
     Active Substance: SECUKINUMAB
     Indication: PSORIASIS
     Dosage: 300 MG, QMO
     Route: 058

REACTIONS (4)
  - Blood glucose decreased [Unknown]
  - Seizure [Unknown]
  - Influenza [Unknown]
  - Fungal infection [Unknown]
